FAERS Safety Report 14318470 (Version 2)
Quarter: 2018Q1

REPORT INFORMATION
  Report Type: Spontaneous
  Country: AT (occurrence: AT)
  Receive Date: 20171222
  Receipt Date: 20180110
  Transmission Date: 20180509
  Serious: Yes (Hospitalization, Other)
  Sender: FDA-Public Use
  Company Number: AT-PFIZER INC-2015349049

PATIENT
  Age: 26 Year
  Sex: Male

DRUGS (9)
  1. ABILIFY [Suspect]
     Active Substance: ARIPIPRAZOLE
     Dosage: 20 MG, 1X/DAY
     Route: 048
     Dates: start: 20150619, end: 20150902
  2. TEMESTA (LORAZEPAM) [Suspect]
     Active Substance: LORAZEPAM
     Dosage: 1-5 MG, 1X/DAY
     Route: 065
     Dates: start: 20150812, end: 20150901
  3. ZYPREXA [Suspect]
     Active Substance: OLANZAPINE
     Dosage: 10 MG, 1X/DAY
     Route: 048
     Dates: start: 20150601, end: 20150614
  4. ABILIFY [Suspect]
     Active Substance: ARIPIPRAZOLE
     Dosage: 10 MG, 1X/DAY
     Route: 048
     Dates: start: 20150617, end: 20150618
  5. TEMESTA (LORAZEPAM) [Suspect]
     Active Substance: LORAZEPAM
     Dosage: 4 MG, 1X/DAY
     Route: 065
     Dates: start: 20150617, end: 20150702
  6. TEMESTA (LORAZEPAM) [Suspect]
     Active Substance: LORAZEPAM
     Dosage: 7.5 MG, 1X/DAY
     Route: 065
     Dates: start: 20150703, end: 20150811
  7. LOVENOX [Concomitant]
     Active Substance: ENOXAPARIN SODIUM
     Dosage: UNK
     Route: 065
     Dates: start: 20150618, end: 20150622
  8. ZYPREXA [Suspect]
     Active Substance: OLANZAPINE
     Dosage: 20 MG, 1X/DAY
     Route: 048
     Dates: start: 20150615
  9. ABILIFY [Suspect]
     Active Substance: ARIPIPRAZOLE
     Dosage: 10 MG, 1X/DAY
     Route: 048
     Dates: start: 20150903, end: 20150910

REACTIONS (2)
  - Pulmonary embolism [Recovered/Resolved]
  - Catatonia [Unknown]

NARRATIVE: CASE EVENT DATE: 20150630
